FAERS Safety Report 4269316-6 (Version None)
Quarter: 2004Q1

REPORT INFORMATION
  Report Type: 
  Country: None (occurrence: None)
  Receive Date: 20040109
  Receipt Date: 20031229
  Transmission Date: 20041129
  Serious: Yes (Hospitalization)
  Sender: FDA-Public Use
  Company Number: US-JNJFOC-20030601295

PATIENT
  Age: 58 Year
  Sex: Female

DRUGS (17)
  1. REMICADE [Suspect]
     Indication: RHEUMATOID ARTHRITIS
     Dates: start: 20011001, end: 20020506
  2. PRANDIN (DEFLAZACORT) [Concomitant]
  3. PREDNISONE [Concomitant]
  4. PREMARIN [Concomitant]
  5. PROVERA [Concomitant]
  6. CHROMOGEN (CHROMOGEN) [Concomitant]
  7. FOLIC ACID [Concomitant]
  8. METHOTREXATE [Concomitant]
  9. LOMOTIL [Concomitant]
  10. LIPITOR [Concomitant]
  11. NITRO PATCH (GLYCERYL TRINITRATE) [Concomitant]
  12. LASIX [Concomitant]
  13. K-DUR 10 [Concomitant]
  14. PROTONIX [Concomitant]
  15. ATENOLOL [Concomitant]
  16. ALTACE [Concomitant]
  17. CALCIUM (CALCIUM) [Concomitant]

REACTIONS (9)
  - HAEMATOCRIT DECREASED [None]
  - HAEMOGLOBIN DECREASED [None]
  - HYSTEROSALPINGO-OOPHORECTOMY [None]
  - OSTEOMYELITIS [None]
  - PLATELET COUNT INCREASED [None]
  - POST PROCEDURAL COMPLICATION [None]
  - SKIN ULCER [None]
  - STAPHYLOCOCCAL INFECTION [None]
  - STREPTOCOCCAL BACTERAEMIA [None]
